FAERS Safety Report 15501510 (Version 1)
Quarter: 2018Q4

REPORT INFORMATION
  Report Type: Spontaneous
  Country: US (occurrence: US)
  Receive Date: 20181015
  Receipt Date: 20181015
  Transmission Date: 20190205
  Serious: No
  Sender: FDA-Public Use
  Company Number: US-AMGEN-USASP2018105138

PATIENT
  Sex: Male

DRUGS (2)
  1. BLINCYTO [Suspect]
     Active Substance: BLINATUMOMAB
     Dosage: 9 MUG, QD
     Route: 042
  2. BLINCYTO [Suspect]
     Active Substance: BLINATUMOMAB
     Indication: PRODUCT USED FOR UNKNOWN INDICATION
     Dosage: UNK
     Route: 042

REACTIONS (1)
  - Adverse event [Unknown]
